FAERS Safety Report 13967828 (Version 2)
Quarter: 2017Q4

REPORT INFORMATION
  Report Type: Spontaneous
  Country: US (occurrence: US)
  Receive Date: 20170914
  Receipt Date: 20171215
  Transmission Date: 20180320
  Serious: Yes (Other)
  Sender: FDA-Public Use
  Company Number: US-BAYER-2017-176178

PATIENT
  Age: 22 Year
  Sex: Female
  Weight: 66 kg

DRUGS (2)
  1. MIRENA [Suspect]
     Active Substance: LEVONORGESTREL
     Indication: CONTRACEPTION
  2. MIRENA [Suspect]
     Active Substance: LEVONORGESTREL
     Indication: CONTRACEPTION
     Dosage: 20 MCG/24HR, CONT
     Route: 015
     Dates: start: 201606, end: 20170912

REACTIONS (4)
  - Device breakage [Recovered/Resolved with Sequelae]
  - Embedded device [Recovered/Resolved with Sequelae]
  - Genital haemorrhage [None]
  - Procedural pain [Recovered/Resolved with Sequelae]

NARRATIVE: CASE EVENT DATE: 201606
